FAERS Safety Report 21344622 (Version 1)
Quarter: 2022Q3

REPORT INFORMATION
  Report Type: Spontaneous
  Country: CN (occurrence: CN)
  Receive Date: 20220916
  Receipt Date: 20220916
  Transmission Date: 20221027
  Serious: Yes (Other)
  Sender: FDA-Public Use
  Company Number: None

PATIENT
  Age: 48 Year
  Sex: Female
  Weight: 60 kg

DRUGS (4)
  1. CYCLOPHOSPHAMIDE [Suspect]
     Active Substance: CYCLOPHOSPHAMIDE
     Indication: Breast cancer female
     Dosage: 0.9 G, QD, DIUTED WITH 0.9 % NS (500 ML)
     Route: 041
     Dates: start: 20220816, end: 20220816
  2. SODIUM CHLORIDE [Suspect]
     Active Substance: SODIUM CHLORIDE
     Indication: Medication dilution
     Dosage: 500 ML, QD, DILUTED IN CYCLOPHOSPHAMIDE (0.9 G)
     Route: 041
     Dates: start: 20220816, end: 20220816
  3. SODIUM CHLORIDE [Suspect]
     Active Substance: SODIUM CHLORIDE
     Dosage: 500 ML, QD, DILUTED IN EPIRUBICIN HYDROCHLORIDE (160 MG)
     Route: 041
     Dates: start: 20220816, end: 20220816
  4. EPIRUBICIN HYDROCHLORIDE [Suspect]
     Active Substance: EPIRUBICIN HYDROCHLORIDE
     Indication: Breast cancer female
     Dosage: 160 MG, QD, DILUTED WITH 0.9% NS 500ML
     Route: 041
     Dates: start: 20220816, end: 20220816

REACTIONS (3)
  - Drug-induced liver injury [Unknown]
  - Transaminases increased [Recovering/Resolving]
  - Blood bilirubin increased [Recovering/Resolving]

NARRATIVE: CASE EVENT DATE: 20220819
